FAERS Safety Report 25340706 (Version 1)
Quarter: 2025Q2

REPORT INFORMATION
  Report Type: Report from Study
  Country: US (occurrence: US)
  Receive Date: 20250521
  Receipt Date: 20250521
  Transmission Date: 20250717
  Serious: Yes (Other)
  Sender: UCB
  Company Number: US-UCBSA-2025000770

PATIENT
  Sex: Female

DRUGS (2)
  1. BIMEKIZUMAB [Suspect]
     Active Substance: BIMEKIZUMAB
     Indication: Psoriasis
     Dosage: 320 MILLIGRAM, EV 4 WEEKS
     Route: 058
     Dates: start: 20241123
  2. BIMEKIZUMAB [Suspect]
     Active Substance: BIMEKIZUMAB
     Route: 058

REACTIONS (6)
  - Psoriatic arthropathy [Not Recovered/Not Resolved]
  - Psoriasis [Not Recovered/Not Resolved]
  - Stress [Not Recovered/Not Resolved]
  - Product distribution issue [Unknown]
  - Incorrect dose administered [Unknown]
  - Device defective [Unknown]

NARRATIVE: CASE EVENT DATE: 20240101
